FAERS Safety Report 20239448 (Version 3)
Quarter: 2022Q1

REPORT INFORMATION
  Report Type: Spontaneous
  Country: PL (occurrence: PL)
  Receive Date: 20211228
  Receipt Date: 20220127
  Transmission Date: 20220423
  Serious: Yes (Other)
  Sender: FDA-Public Use
  Company Number: PL-IPSEN Group, Research and Development-2021-32866

PATIENT
  Age: 49 Year
  Sex: Female

DRUGS (7)
  1. IRINOTECAN HYDROCHLORIDE [Suspect]
     Active Substance: IRINOTECAN HYDROCHLORIDE
     Indication: Adenocarcinoma pancreas
     Dosage: NOT REPORTED
     Route: 065
     Dates: start: 20200704
  2. FLUOROURACIL [Suspect]
     Active Substance: FLUOROURACIL
     Indication: Adenocarcinoma pancreas
     Dosage: NOT REPORTED
     Route: 065
     Dates: start: 20200704, end: 2020
  3. FLUOROURACIL [Suspect]
     Active Substance: FLUOROURACIL
     Dosage: L4REGIMEN
     Route: 065
     Dates: start: 202010, end: 2020
  4. FLUOROURACIL [Suspect]
     Active Substance: FLUOROURACIL
     Dosage: 7TH CYCLE
     Route: 065
     Dates: start: 20201021
  5. LEUCOVORIN [Suspect]
     Active Substance: LEUCOVORIN
     Indication: Adenocarcinoma pancreas
     Dosage: NOT REPORTED
     Route: 065
     Dates: start: 20200704, end: 2020
  6. LEUCOVORIN [Suspect]
     Active Substance: LEUCOVORIN
     Dosage: L4 REGIMEN
     Route: 065
     Dates: start: 202010, end: 2020
  7. LEUCOVORIN [Suspect]
     Active Substance: LEUCOVORIN
     Dosage: 7TH CYCLE
     Route: 065
     Dates: start: 20201021

REACTIONS (8)
  - Disease progression [Unknown]
  - Leukopenia [Unknown]
  - Cholangitis [Unknown]
  - Hyperbilirubinaemia [Unknown]
  - Cachexia [Unknown]
  - Condition aggravated [Unknown]
  - Anaemia [Unknown]
  - Hypertransaminasaemia [Unknown]

NARRATIVE: CASE EVENT DATE: 20200101
